FAERS Safety Report 25336814 (Version 2)
Quarter: 2025Q2

REPORT INFORMATION
  Report Type: Spontaneous
  Country: US (occurrence: US)
  Receive Date: 20250520
  Receipt Date: 20250620
  Transmission Date: 20250717
  Serious: No
  Sender: VERTEX
  Company Number: US-VERTEX PHARMACEUTICALS-2025-001125

PATIENT
  Age: 80 Year
  Sex: Male

DRUGS (1)
  1. TRIKAFTA [Suspect]
     Active Substance: ELEXACAFTOR\IVACAFTOR\TEZACAFTOR
     Indication: Cystic fibrosis
     Dosage: DAY AND NIGHT DOSES
     Route: 048
     Dates: start: 20210623

REACTIONS (5)
  - Spinal disorder [Unknown]
  - Sciatic nerve neuropathy [Not Recovered/Not Resolved]
  - Upper respiratory tract infection bacterial [Recovered/Resolved]
  - Pneumonia [Recovering/Resolving]
  - Weight decreased [Recovered/Resolved]

NARRATIVE: CASE EVENT DATE: 20250101
